FAERS Safety Report 6280448-3 (Version None)
Quarter: 2009Q3

REPORT INFORMATION
  Report Type: 
  Country: None (occurrence: None)
  Receive Date: 20090724
  Receipt Date: 20081117
  Transmission Date: 20100115
  Serious: Yes (Hospitalization)
  Sender: FDA-Public Use
  Company Number: A0695005A

PATIENT
  Age: 44 Year
  Sex: Male
  Weight: 129.5 kg

DRUGS (4)
  1. AVANDIA [Suspect]
     Dosage: 4MG PER DAY
     Route: 048
     Dates: start: 20010401, end: 20050401
  2. GLUCOPHAGE [Concomitant]
     Dates: start: 19930101
  3. METFORMIN HCL [Concomitant]
     Dates: start: 19930101
  4. DIABETA [Concomitant]
     Dates: start: 19980101

REACTIONS (1)
  - CARDIAC FAILURE CONGESTIVE [None]
